FAERS Safety Report 12411937 (Version 1)
Quarter: 2016Q2

REPORT INFORMATION
  Report Type: Spontaneous
  Country: FR (occurrence: FR)
  Receive Date: 20160527
  Receipt Date: 20160527
  Transmission Date: 20160815
  Serious: Yes (Other)
  Sender: FDA-Public Use
  Company Number: FR-PFIZER INC-2016267475

PATIENT
  Age: 78 Year
  Sex: Male

DRUGS (3)
  1. FUSIDIC ACID [Suspect]
     Active Substance: FUSIDIC ACID
     Indication: OSTEITIS
     Dosage: 500 MG, 3X/DAY
     Route: 048
     Dates: start: 20160419
  2. TAHOR [Suspect]
     Active Substance: ATORVASTATIN CALCIUM
     Indication: DYSLIPIDAEMIA
     Dosage: UNK
     Route: 048
  3. RIFADINE /00146901/ [Suspect]
     Active Substance: RIFAMPIN
     Indication: OSTEITIS
     Dosage: 700 MG, 2X/DAY
     Route: 048
     Dates: start: 20160419

REACTIONS (3)
  - Cholestasis [Unknown]
  - Hyperbilirubinaemia [Unknown]
  - Jaundice [Unknown]

NARRATIVE: CASE EVENT DATE: 20160420
